FAERS Safety Report 12297605 (Version 3)
Quarter: 2016Q3

REPORT INFORMATION
  Report Type: Report from Study
  Country: ZA (occurrence: ZA)
  Receive Date: 20160422
  Receipt Date: 20160825
  Transmission Date: 20161109
  Serious: Yes (Hospitalization)
  Sender: FDA-Public Use
  Company Number: ZA-ABBVIE-16K-143-1606491-00

PATIENT
  Age: 40 Year
  Sex: Female
  Weight: 65 kg

DRUGS (2)
  1. HUMIRA [Suspect]
     Active Substance: ADALIMUMAB
     Indication: CROHN^S DISEASE
     Dosage: WEEK 0
     Route: 058
     Dates: start: 20160406, end: 20160406
  2. CODEINE PHOSPHATE [Concomitant]
     Active Substance: CODEINE PHOSPHATE
     Indication: PRODUCT USED FOR UNKNOWN INDICATION

REACTIONS (9)
  - Ocular discomfort [Unknown]
  - Gastrointestinal obstruction [Unknown]
  - Fatigue [Unknown]
  - Pyrexia [Unknown]
  - Large intestinal stenosis [Unknown]
  - Muscle spasms [Unknown]
  - Intestinal stenosis [Recovering/Resolving]
  - Nausea [Unknown]
  - Colonic fistula [Recovering/Resolving]

NARRATIVE: CASE EVENT DATE: 2016
